FAERS Safety Report 11118259 (Version 3)
Quarter: 2016Q2

REPORT INFORMATION
  Report Type: Spontaneous
  Country: KR (occurrence: KR)
  Receive Date: 20150514
  Receipt Date: 20160513
  Transmission Date: 20160815
  Serious: Yes (Other)
  Sender: FDA-Public Use
  Company Number: KR-SEPTODONT-201502812

PATIENT
  Age: 46 Year
  Sex: Female

DRUGS (1)
  1. SEPTANEST WITH ADRENALINE 1/100.000 [Suspect]
     Active Substance: ARTICAINE HYDROCHLORIDE\EPINEPHRINE BITARTRATE
     Indication: LOCAL ANAESTHESIA
     Dosage: TWO-THIRDS DOSE OF AN AMPLE.
     Route: 004
     Dates: start: 20150320

REACTIONS (1)
  - Paralysis [Not Recovered/Not Resolved]

NARRATIVE: CASE EVENT DATE: 20150320
